FAERS Safety Report 7748179-8 (Version None)
Quarter: 2011Q3

REPORT INFORMATION
  Report Type: 
  Country: None (occurrence: None)
  Receive Date: 20110913
  Receipt Date: 20110901
  Transmission Date: 20111222
  Serious: Yes (Other)
  Sender: FDA-Public Use
  Company Number: US-MYLANLABS-2011S1018728

PATIENT
  Sex: Female

DRUGS (1)
  1. METHYLDOPA [Suspect]

REACTIONS (9)
  - CEREBROVASCULAR ACCIDENT [None]
  - IMMUNE SYSTEM DISORDER [None]
  - HEARING IMPAIRED [None]
  - COORDINATION ABNORMAL [None]
  - COMMUNICATION DISORDER [None]
  - VERTIGO [None]
  - VISUAL IMPAIRMENT [None]
  - READING DISORDER [None]
  - DYSGRAPHIA [None]
